FAERS Safety Report 11103859 (Version 1)
Quarter: 2015Q2

REPORT INFORMATION
  Report Type: Spontaneous
  Country: US (occurrence: US)
  Receive Date: 20150511
  Receipt Date: 20150511
  Transmission Date: 20150821
  Serious: Yes (Hospitalization)
  Sender: FDA-Public Use
  Company Number: US-LPDUSPRD-20150208

PATIENT
  Age: 64 Year
  Sex: Male

DRUGS (8)
  1. CELECOXIB. [Suspect]
     Active Substance: CELECOXIB
     Dosage: 200 MG A DAY
     Route: 065
  2. BISEPTOL [Suspect]
     Active Substance: SULFAMETHOXAZOLE\TRIMETHOPRIM
     Dosage: 40/800 MG (3 TABS PER DAY)
     Route: 048
  3. ALGOCALMINE [Suspect]
     Active Substance: METAMIZOLE SODIUM
     Dosage: 500 MG (2 PILLS PER DAY)
     Route: 048
  4. KETOROLAC TROMETHAMINE INJECTION, USP (0601-25) 15 MG/ML [Suspect]
     Active Substance: KETOROLAC TROMETHAMINE
     Dosage: 30 MG/ML, 2 VIALS PER DAY
     Route: 042
  5. PIROXICAM. [Suspect]
     Active Substance: PIROXICAM
     Dosage: 20 MG PER DAY
     Route: 065
  6. IBUPROFEN. [Suspect]
     Active Substance: IBUPROFEN
     Dosage: 200 MG PER DAY
     Route: 065
  7. ANTINEVRALGIC [Suspect]
     Active Substance: ASPIRIN\CAFFEINE\PHENACETIN
     Dosage: 250/150/50MG 2 PILLS PER DAY
     Route: 048
  8. MELOXICAM. [Suspect]
     Active Substance: MELOXICAM
     Dosage: 15 MG, 2 VIALS PER DAY
     Route: 051

REACTIONS (4)
  - Peripheral sensory neuropathy [None]
  - Drug interaction [Recovered/Resolved]
  - Rhabdomyolysis [None]
  - Self-medication [None]
